FAERS Safety Report 11150339 (Version 1)
Quarter: 2015Q2

REPORT INFORMATION
  Report Type: Spontaneous
  Country: FR (occurrence: FR)
  Receive Date: 20150531
  Receipt Date: 20150531
  Transmission Date: 20150821
  Serious: Yes (Life-Threatening)
  Sender: FDA-Public Use
  Company Number: FR-SA-2015SA072107

PATIENT
  Age: 75 Year
  Sex: Male

DRUGS (3)
  1. ZYVOXID [Suspect]
     Active Substance: LINEZOLID
     Route: 042
     Dates: start: 20150424
  2. RIFADINE [Suspect]
     Active Substance: RIFAMPIN
     Route: 042
     Dates: start: 20150424
  3. INVANZ [Suspect]
     Active Substance: ERTAPENEM SODIUM
     Indication: DEVICE RELATED INFECTION
     Route: 042
     Dates: start: 20150424, end: 20150429

REACTIONS (2)
  - Myoclonus [Recovered/Resolved]
  - Seizure [Recovered/Resolved]

NARRATIVE: CASE EVENT DATE: 20150429
